FAERS Safety Report 6176847-0 (Version None)
Quarter: 2009Q2

REPORT INFORMATION
  Report Type: 
  Country: None (occurrence: None)
  Receive Date: 20090501
  Receipt Date: 20090429
  Transmission Date: 20091009
  Serious: Yes (Death, Life-Threatening, Hospitalization, Other)
  Sender: FDA-Public Use
  Company Number: PHHO2009TW03807

PATIENT
  Sex: Female
  Weight: 79.4 kg

DRUGS (4)
  1. RAD 666 RAD+TAB+CMAS [Suspect]
     Indication: METASTATIC GASTRIC CANCER
     Dosage: 10 MG/DAY
     Route: 048
     Dates: start: 20090223, end: 20090310
  2. CISPLATIN [Concomitant]
     Indication: METASTATIC GASTRIC CANCER
     Dosage: UNK
     Dates: end: 20090310
  3. FLUOROURACIL [Concomitant]
     Indication: METASTATIC GASTRIC CANCER
  4. LEUCOVORIN CALCIUM [Concomitant]
     Indication: METASTATIC GASTRIC CANCER

REACTIONS (23)
  - AGITATION [None]
  - BACTERAEMIA [None]
  - CENTRAL VENOUS CATHETER REMOVAL [None]
  - COLD SWEAT [None]
  - DEEP VEIN THROMBOSIS [None]
  - DYSPEPSIA [None]
  - ENDOTRACHEAL INTUBATION COMPLICATION [None]
  - ERYTHEMA [None]
  - GASTROINTESTINAL HAEMORRHAGE [None]
  - HAEMOPTYSIS [None]
  - HYPOTENSION [None]
  - LUNG INFILTRATION [None]
  - METASTASES TO SKIN [None]
  - NAUSEA [None]
  - NODULE [None]
  - PNEUMONIA [None]
  - PYREXIA [None]
  - RESPIRATORY FAILURE [None]
  - SEPTIC SHOCK [None]
  - TACHYCARDIA [None]
  - TACHYPNOEA [None]
  - TRACHEOSTOMY [None]
  - VOMITING [None]
